FAERS Safety Report 6977516-7 (Version None)
Quarter: 2010Q3

REPORT INFORMATION
  Report Type: 
  Country: None (occurrence: None)
  Receive Date: 20100910
  Receipt Date: 20100904
  Transmission Date: 20110219
  Serious: Yes (Other)
  Sender: FDA-Public Use
  Company Number: US-AMGEN-KDL436185

PATIENT
  Sex: Male

DRUGS (7)
  1. ENBREL [Suspect]
     Indication: RHEUMATOID ARTHRITIS
     Dates: start: 20100101
  2. LORCET-HD [Concomitant]
  3. PREVACID [Concomitant]
  4. BIAXIN [Concomitant]
  5. ZOLOFT [Concomitant]
  6. PREDNISONE [Concomitant]
  7. HYDROCHLOROTHIAZIDE [Concomitant]

REACTIONS (3)
  - BLOOD POTASSIUM DECREASED [None]
  - MUSCLE SPASMS [None]
  - TREMOR [None]
